FAERS Safety Report 6124462-7 (Version None)
Quarter: 2009Q1

REPORT INFORMATION
  Report Type: 
  Country: None (occurrence: None)
  Receive Date: 20090317
  Receipt Date: 20090317
  Transmission Date: 20090719
  Serious: Yes (Life-Threatening, Other)
  Sender: FDA-Public Use
  Company Number: None

PATIENT
  Age: 71 Year
  Sex: Female
  Weight: 83.9154 kg

DRUGS (2)
  1. ACTONEL [Suspect]
     Indication: OSTEOPENIA
     Dosage: 1 TABLET ONCE A WEEK PO
     Route: 048
     Dates: start: 20051001, end: 20051231
  2. BONIVA [Suspect]
     Indication: OSTEOPENIA
     Dosage: 1 TABLET ONCE A MONTH PO
     Route: 048
     Dates: start: 20060101, end: 20060430

REACTIONS (4)
  - DYSPEPSIA [None]
  - GASTROINTESTINAL DISORDER [None]
  - OESOPHAGEAL SQUAMOUS CELL CARCINOMA [None]
  - VOMITING [None]
